FAERS Safety Report 15837173 (Version 1)
Quarter: 2018Q4

REPORT INFORMATION
  Report Type: Spontaneous
  Country: US (occurrence: US)
  Receive Date: 20181219
  Receipt Date: 20181219
  Transmission Date: 20190205
  Serious: No
  Sender: FDA-Public Use
  Company Number: None

PATIENT
  Age: 59 Year
  Sex: Female
  Weight: 66.68 kg

DRUGS (4)
  1. OXALIPLATIN. [Suspect]
     Active Substance: OXALIPLATIN
     Indication: ADENOCARCINOMA PANCREAS
     Dosage: ?          OTHER DOSE:145.5MG;OTHER FREQUENCY:EVERY 2 WEEKS;?
     Route: 042
     Dates: start: 20181114, end: 20181212
  2. 5-FU [Suspect]
     Active Substance: FLUOROURACIL
  3. ABRAXANE [Suspect]
     Active Substance: PACLITAXEL
     Indication: ADENOCARCINOMA PANCREAS
     Dosage: ?          OTHER FREQUENCY:EVERY 2 WEEKS;?
     Route: 042
     Dates: start: 20181114, end: 20181212
  4. LEUCOVORIN. [Suspect]
     Active Substance: LEUCOVORIN

REACTIONS (4)
  - Cardiac failure [None]
  - Cardiac disorder [None]
  - Cardiomyopathy [None]
  - Pulmonary oedema [None]

NARRATIVE: CASE EVENT DATE: 20181212
